FAERS Safety Report 6171865-0 (Version None)
Quarter: 2009Q2

REPORT INFORMATION
  Report Type: 
  Country: None (occurrence: None)
  Receive Date: 20090428
  Receipt Date: 20090428
  Transmission Date: 20091009
  Serious: Yes (Hospitalization)
  Sender: FDA-Public Use
  Company Number: None

PATIENT
  Age: 79 Year
  Sex: Male
  Weight: 90 kg

DRUGS (2)
  1. TERAZOSIN HCL [Suspect]
     Indication: BENIGN PROSTATIC HYPERPLASIA
     Dosage: 1 MG HS PO
     Route: 048
     Dates: start: 20081205, end: 20090106
  2. HYDROCHLOROTHIAZIDE [Suspect]
     Indication: HYPERTENSION
     Dosage: 25 MG EVERY DAY PO
     Route: 048
     Dates: start: 20030602, end: 20090106

REACTIONS (6)
  - FALL [None]
  - HEAD INJURY [None]
  - HEART RATE DECREASED [None]
  - HYPONATRAEMIA [None]
  - HYPOTENSION [None]
  - SYNCOPE [None]
